FAERS Safety Report 19167311 (Version 2)
Quarter: 2021Q2

REPORT INFORMATION
  Report Type: Spontaneous
  Country: US (occurrence: US)
  Receive Date: 20210422
  Receipt Date: 20210512
  Transmission Date: 20210717
  Serious: No
  Sender: FDA-Public Use
  Company Number: US-STRONGBRIDGE BIOPHARMA-2021-STR-000141

PATIENT
  Sex: Female

DRUGS (2)
  1. KEVEYIS [Suspect]
     Active Substance: DICHLORPHENAMIDE
     Indication: FAMILIAL PERIODIC PARALYSIS
     Dosage: 75 MG, BID
     Route: 048
  2. KEVEYIS [Suspect]
     Active Substance: DICHLORPHENAMIDE
     Dosage: 75 MG, BID
     Route: 048
     Dates: start: 20170427

REACTIONS (5)
  - Blood potassium decreased [Recovering/Resolving]
  - Accidental overdose [Recovering/Resolving]
  - Tinnitus [Unknown]
  - Paraesthesia [Recovering/Resolving]
  - Wrong technique in product usage process [Recovering/Resolving]
